FAERS Safety Report 6071637-1 (Version None)
Quarter: 2009Q1

REPORT INFORMATION
  Report Type: 
  Country: None (occurrence: None)
  Receive Date: 20090210
  Receipt Date: 20090202
  Transmission Date: 20090719
  Serious: No
  Sender: FDA-Public Use
  Company Number: US-JNJFOC-20090201206

PATIENT
  Sex: Male

DRUGS (2)
  1. DURAGESIC-100 [Suspect]
     Route: 062
  2. DURAGESIC-100 [Suspect]
     Indication: ABDOMINAL PAIN
     Route: 062

REACTIONS (4)
  - INCORRECT DRUG ADMINISTRATION DURATION [None]
  - NASOPHARYNGITIS [None]
  - SKIN EXFOLIATION [None]
  - THERAPEUTIC RESPONSE DECREASED [None]
